FAERS Safety Report 24379214 (Version 2)
Quarter: 2025Q1

REPORT INFORMATION
  Report Type: Spontaneous
  Country: US (occurrence: US)
  Receive Date: 20240930
  Receipt Date: 20250122
  Transmission Date: 20250409
  Serious: Yes (Hospitalization)
  Sender: INCYTE
  Company Number: US-INCYTE CORPORATION-2024IN010007

PATIENT

DRUGS (3)
  1. JAKAFI [Suspect]
     Active Substance: RUXOLITINIB
     Indication: Stem cell transplant
     Dosage: 2.5 MILLIGRAM, BID
     Route: 048
     Dates: start: 202408
  2. JAKAFI [Suspect]
     Active Substance: RUXOLITINIB
     Indication: Thrombotic microangiopathy
     Dosage: 5 MILLIGRAM, BID
     Route: 048
     Dates: start: 202408
  3. SOLIRIS [Concomitant]
     Active Substance: ECULIZUMAB
     Indication: Product used for unknown indication
     Route: 065

REACTIONS (3)
  - Ill-defined disorder [Unknown]
  - Off label use [Unknown]
  - Wrong technique in product usage process [Unknown]

NARRATIVE: CASE EVENT DATE: 20240801
